FAERS Safety Report 8163401-4 (Version None)
Quarter: 2012Q1

REPORT INFORMATION
  Report Type: 
  Country: None (occurrence: None)
  Receive Date: 20120224
  Receipt Date: 20120215
  Transmission Date: 20120608
  Serious: Yes (Other)
  Sender: FDA-Public Use
  Company Number: CA-JNJFOC-20120208973

PATIENT
  Sex: Female
  Weight: 71 kg

DRUGS (1)
  1. REMICADE [Suspect]
     Indication: ANKYLOSING SPONDYLITIS
     Route: 042
     Dates: start: 20111011

REACTIONS (6)
  - FATIGUE [None]
  - STRESS [None]
  - NITRITE URINE PRESENT [None]
  - CELLULITIS [None]
  - MICTURITION URGENCY [None]
  - POLLAKIURIA [None]
